FAERS Safety Report 24788269 (Version 3)
Quarter: 2025Q1

REPORT INFORMATION
  Report Type: Spontaneous
  Country: IE (occurrence: IE)
  Receive Date: 20241230
  Receipt Date: 20250217
  Transmission Date: 20250408
  Serious: No
  Sender: TAKEDA
  Company Number: IE-ROCHE-10000161502

PATIENT
  Age: 28 Year
  Sex: Male

DRUGS (2)
  1. VELCADE [Suspect]
     Active Substance: BORTEZOMIB
     Indication: Encephalitis autoimmune
  2. CYCLOPHOSPHAMIDE [Concomitant]
     Active Substance: CYCLOPHOSPHAMIDE
     Indication: Encephalitis autoimmune

REACTIONS (2)
  - Drug ineffective [Unknown]
  - Off label use [Unknown]
